FAERS Safety Report 10056162 (Version 2)
Quarter: 2014Q2

REPORT INFORMATION
  Report Type: Spontaneous
  Country: US (occurrence: US)
  Receive Date: 20140403
  Receipt Date: 20140418
  Transmission Date: 20141212
  Serious: Yes (Other)
  Sender: FDA-Public Use
  Company Number: US-PFIZER INC-2014094117

PATIENT
  Age: 56 Year
  Sex: Female
  Weight: 77.1 kg

DRUGS (5)
  1. GABAPENTIN [Suspect]
     Dosage: 1200 MG, UNK
  2. SYNTHROID [Concomitant]
     Dosage: UNK
  3. CRESTOR [Concomitant]
     Dosage: UNK
  4. LYRICA [Concomitant]
     Indication: FIBROMYALGIA
     Dosage: UNK
  5. LYRICA [Concomitant]
     Indication: HERPES ZOSTER

REACTIONS (9)
  - Choking [Unknown]
  - Nausea [Unknown]
  - Dysphagia [Unknown]
  - Pain [Unknown]
  - Pain in extremity [Unknown]
  - Abdominal pain upper [Unknown]
  - Abdominal discomfort [Unknown]
  - Weight increased [Unknown]
  - Product coating issue [Unknown]
